FAERS Safety Report 15604434 (Version 3)
Quarter: 2020Q4

REPORT INFORMATION
  Report Type: Report from Study
  Country: CA (occurrence: CA)
  Receive Date: 20181110
  Receipt Date: 20201109
  Transmission Date: 20210113
  Serious: Yes (Other)
  Sender: FDA-Public Use
  Company Number: PHHY2018CA093325

PATIENT
  Sex: Female

DRUGS (1)
  1. GILENYA [Suspect]
     Active Substance: FINGOLIMOD HYDROCHLORIDE
     Indication: RELAPSING-REMITTING MULTIPLE SCLEROSIS
     Dosage: UNK (PATIENT HAD STOPPED TREATMENT BACK IN NOV 2019)
     Route: 048
     Dates: start: 20160713, end: 20201102

REACTIONS (1)
  - Multiple sclerosis relapse [Unknown]
